FAERS Safety Report 19809477 (Version 3)
Quarter: 2022Q2

REPORT INFORMATION
  Report Type: Spontaneous
  Country: US (occurrence: US)
  Receive Date: 20210908
  Receipt Date: 20220518
  Transmission Date: 20220720
  Serious: Yes (Hospitalization, Other)
  Sender: FDA-Public Use
  Company Number: US-MALLINCKRODT PHARMACEUTICALS-T202103882

PATIENT
  Age: 58 Year
  Sex: Female

DRUGS (2)
  1. H.P. ACTHAR [Suspect]
     Active Substance: CORTICOTROPIN
     Indication: Multiple sclerosis
     Dosage: 1 MILLILITER (80 UNITS), QD, FOR 2 WEEKS AS DIRECTED
     Route: 030
     Dates: start: 202106, end: 2021
  2. H.P. ACTHAR [Suspect]
     Active Substance: CORTICOTROPIN
     Dosage: 80 UNITS (1ML) DAILY FOR 2 WEEKS
     Route: 030
     Dates: start: 202205

REACTIONS (2)
  - Perforated ulcer [Recovering/Resolving]
  - Surgery [Unknown]

NARRATIVE: CASE EVENT DATE: 20210801
